FAERS Safety Report 6140144-X (Version None)
Quarter: 2009Q2

REPORT INFORMATION
  Report Type: 
  Country: None (occurrence: None)
  Receive Date: 20090401
  Receipt Date: 20090327
  Transmission Date: 20091009
  Serious: Yes (Other)
  Sender: FDA-Public Use
  Company Number: US-ASTRAZENECA-2008UW11450

PATIENT
  Age: 460 Month
  Sex: Female
  Weight: 81.6 kg

DRUGS (33)
  1. SEROQUEL [Suspect]
     Indication: NIGHTMARE
     Route: 048
     Dates: start: 20060101, end: 20070301
  2. SEROQUEL [Suspect]
     Indication: DEPRESSION
     Route: 048
     Dates: start: 20060101, end: 20070301
  3. CYMBALTA [Concomitant]
     Dates: start: 20050601, end: 20051201
  4. CYMBALTA [Concomitant]
     Dosage: 30 MG, 3 CAPSULES DAILY
     Dates: start: 20051201, end: 20071201
  5. TOPAMAX [Concomitant]
     Dates: start: 20050601, end: 20061001
  6. TOPAMAX [Concomitant]
     Dates: start: 20061101
  7. WELLBUTRIN SR [Concomitant]
     Dates: start: 20050601, end: 20050701
  8. WELLBUTRIN SR [Concomitant]
     Dates: start: 20050901, end: 20060701
  9. BACLOFEN [Concomitant]
     Dosage: 10 MG THREE TABS DAILY
     Dates: start: 20050901, end: 20061201
  10. BACLOFEN [Concomitant]
     Dates: start: 20070101, end: 20071201
  11. MIRAPEX [Concomitant]
     Dates: start: 20050601, end: 20070201
  12. SINGULAIR [Concomitant]
     Dates: start: 20050601, end: 20071201
  13. ZOCOR [Concomitant]
     Dates: start: 20060101, end: 20060501
  14. METOPROLOL [Concomitant]
     Dates: start: 20060401, end: 20060801
  15. SIMVASTATIN [Concomitant]
     Dates: start: 20060701, end: 20061001
  16. PRIMIDONE [Concomitant]
     Dates: start: 20061001, end: 20071201
  17. CRESTOR [Concomitant]
     Dates: start: 20061101, end: 20071201
  18. METFORMIN HCL [Concomitant]
     Dates: start: 20070601, end: 20070701
  19. METFORMIN HCL [Concomitant]
     Dates: start: 20070801, end: 20071201
  20. AMBIEN [Concomitant]
     Dates: start: 20051201, end: 20060101
  21. BENZAMYCIN [Concomitant]
     Route: 061
  22. HYDROCODONE BITARTRATE + ACETAMINOPHEN [Concomitant]
  23. PROMETHAZINE [Concomitant]
     Dates: start: 20051101
  24. TIZANIDINE HCL [Concomitant]
     Dosage: 4 MG, 2 TABLETS PER DAY
     Dates: start: 20050901
  25. LIPITOR [Concomitant]
     Dates: start: 20050601, end: 20050701
  26. AZITHROMYCIN [Concomitant]
     Dates: start: 20060201, end: 20060401
  27. AMOXICILLIN [Concomitant]
     Dates: start: 20060201
  28. SULFAMETHOXAZOLE AND TRIMETHOPRIM [Concomitant]
     Dates: start: 20060401
  29. PROPOXYPHENE NAPSYLATE AND ACETAMINOPHEN [Concomitant]
     Dates: start: 20060601
  30. PENICILLIN VK [Concomitant]
     Dates: start: 20060901
  31. FLUCONAZOLE [Concomitant]
     Dates: start: 20060901
  32. REQUIP [Concomitant]
  33. AMOX TR-K [Concomitant]
     Dates: start: 20071101

REACTIONS (3)
  - DIABETES MELLITUS [None]
  - HERNIA [None]
  - MOVEMENT DISORDER [None]
